FAERS Safety Report 12680200 (Version 1)
Quarter: 2016Q3

REPORT INFORMATION
  Report Type: Spontaneous
  Country: US (occurrence: US)
  Receive Date: 20160824
  Receipt Date: 20160824
  Transmission Date: 20161109
  Serious: No
  Sender: FDA-Public Use
  Company Number: PHHY2016US115920

PATIENT
  Age: 44 Year
  Sex: Female

DRUGS (1)
  1. CAMBIA [Suspect]
     Active Substance: DICLOFENAC POTASSIUM
     Indication: MIGRAINE
     Dosage: 50 MG SACHET, 1 PACKET WITH 2 TABLESPOONS OF WATER
     Route: 065
     Dates: start: 20160712

REACTIONS (1)
  - Drug ineffective [Unknown]
